FAERS Safety Report 24387674 (Version 1)
Quarter: 2024Q4

REPORT INFORMATION
  Report Type: Spontaneous
  Country: US (occurrence: None)
  Receive Date: 20241001
  Receipt Date: 20241001
  Transmission Date: 20250115
  Serious: Yes (Hospitalization)
  Sender: Public
  Company Number: None

PATIENT
  Age: 77 Year
  Sex: Male
  Weight: 113 kg

DRUGS (4)
  1. RIVAROXABAN [Suspect]
     Active Substance: RIVAROXABAN
     Indication: Atrial fibrillation
     Dosage: FREQUENCY : DAILY;?
     Route: 048
     Dates: end: 20240310
  2. ASPIRIN [Suspect]
     Active Substance: ASPIRIN
     Indication: Coronary arterial stent insertion
     Dosage: FREQUENCY : DAILY;?
     Route: 048
     Dates: end: 20240312
  3. APIXABAN [Suspect]
     Active Substance: APIXABAN
  4. NAPROXEN [Suspect]
     Active Substance: NAPROXEN

REACTIONS (8)
  - Pruritus [None]
  - Anaemia [None]
  - Haemorrhage [None]
  - Gout [None]
  - Fall [None]
  - Faeces discoloured [None]
  - Oesophageal ulcer [None]
  - Gastric antral vascular ectasia [None]

NARRATIVE: CASE EVENT DATE: 20240310
